FAERS Safety Report 13904188 (Version 2)
Quarter: 2017Q4

REPORT INFORMATION
  Report Type: Report from Study
  Country: None (occurrence: GB)
  Receive Date: 20170825
  Receipt Date: 20171211
  Transmission Date: 20180320
  Serious: Yes (Death)
  Sender: FDA-Public Use
  Company Number: GB-ABBVIE-17K-167-2080417-00

PATIENT
  Age: 70 Year
  Sex: Female

DRUGS (1)
  1. HUMIRA [Suspect]
     Active Substance: ADALIMUMAB
     Indication: RHEUMATOID ARTHRITIS
     Route: 058
     Dates: start: 20031015, end: 20031215

REACTIONS (4)
  - Vascular dementia [Fatal]
  - Rheumatoid arthritis [Fatal]
  - Chronic kidney disease [Fatal]
  - Hodgkin^s disease [Fatal]

NARRATIVE: CASE EVENT DATE: 20150529
